FAERS Safety Report 4520200-X (Version None)
Quarter: 2004Q4

REPORT INFORMATION
  Report Type: 
  Country: None (occurrence: None)
  Receive Date: 20041025
  Receipt Date: 20040603
  Transmission Date: 20050328
  Serious: Yes (Hospitalization)
  Sender: FDA-Public Use
  Company Number: 2004-BP-04439BP

PATIENT
  Sex: Female

DRUGS (1)
  1. COMBIVENT [Suspect]
     Dosage: 12 PUF (SEE TEXT, 18 MCG/103 MCG 3 PUFFS QID), IH
     Route: 055
     Dates: start: 20000101

REACTIONS (3)
  - DYSGEUSIA [None]
  - RESPIRATORY DISORDER [None]
  - URINARY TRACT INFECTION [None]
